FAERS Safety Report 18953181 (Version 1)
Quarter: 2021Q1

REPORT INFORMATION
  Report Type: Spontaneous
  Country: US (occurrence: US)
  Receive Date: 20210227
  Receipt Date: 20210227
  Transmission Date: 20210420
  Serious: Yes (Disabling)
  Sender: FDA-Public Use
  Company Number: None

PATIENT
  Age: 13 Year
  Sex: Male
  Weight: 45 kg

DRUGS (2)
  1. MONTELUKAST [Suspect]
     Active Substance: MONTELUKAST SODIUM
  2. SINGULAIR [Suspect]
     Active Substance: MONTELUKAST SODIUM
     Indication: ASTHMA
     Dates: start: 20110101, end: 20200301

REACTIONS (5)
  - Tic [None]
  - Mood swings [None]
  - Obsessive-compulsive disorder [None]
  - Anger [None]
  - Intrusive thoughts [None]

NARRATIVE: CASE EVENT DATE: 20170101
